FAERS Safety Report 15336240 (Version 1)
Quarter: 2018Q3

REPORT INFORMATION
  Report Type: Spontaneous
  Country: US (occurrence: US)
  Receive Date: 20180827
  Receipt Date: 20180827
  Transmission Date: 20181010
  Serious: Yes (Death, Life-Threatening, Hospitalization, Disabling)
  Sender: FDA-Public Use
  Company Number: None

PATIENT
  Age: 79 Year
  Sex: Female
  Weight: 61.6 kg

DRUGS (10)
  1. CLONIDINE. [Concomitant]
     Active Substance: CLONIDINE
     Dates: start: 20180821, end: 20180821
  2. CARVEDILOL. [Concomitant]
     Active Substance: CARVEDILOL
     Dates: start: 20180820, end: 20180821
  3. PERCOCET [Concomitant]
     Active Substance: ACETAMINOPHEN\OXYCODONE HYDROCHLORIDE
     Dates: start: 20180821, end: 20180821
  4. LOSARTAN. [Concomitant]
     Active Substance: LOSARTAN
     Dates: start: 20180820, end: 20180821
  5. ATROPINE. [Concomitant]
     Active Substance: ATROPINE
     Dates: start: 20180821, end: 20180821
  6. TEMAZEPAM. [Concomitant]
     Active Substance: TEMAZEPAM
     Dates: start: 20180820, end: 20180820
  7. FENTANYL. [Concomitant]
     Active Substance: FENTANYL
     Dates: start: 20180821, end: 20180823
  8. LABETALOL [Concomitant]
     Active Substance: LABETALOL\LABETALOL HYDROCHLORIDE
     Dates: start: 20180820, end: 20180821
  9. HEPARIN [Suspect]
     Active Substance: HEPARIN SODIUM
     Route: 051
     Dates: start: 20180820, end: 20180821
  10. ALTEPLASE. [Suspect]
     Active Substance: ALTEPLASE
     Dates: start: 20180821, end: 20180822

REACTIONS (5)
  - Arterial bypass stenosis [None]
  - Cardiac arrest [None]
  - Thrombolysis [None]
  - Impaired healing [None]
  - Peripheral artery occlusion [None]

NARRATIVE: CASE EVENT DATE: 20180822
